FAERS Safety Report 25681901 (Version 2)
Quarter: 2025Q3

REPORT INFORMATION
  Report Type: Spontaneous
  Country: JP (occurrence: JP)
  Receive Date: 20250814
  Receipt Date: 20250902
  Transmission Date: 20251020
  Serious: Yes (Other)
  Sender: JOHNSON AND JOHNSON
  Company Number: JP-JNJFOC-20250815667

PATIENT

DRUGS (2)
  1. YONDELIS [Suspect]
     Active Substance: TRABECTEDIN
     Indication: Liposarcoma
     Route: 041
     Dates: start: 20250704
  2. YONDELIS [Suspect]
     Active Substance: TRABECTEDIN
     Route: 041
     Dates: start: 20250725

REACTIONS (3)
  - Electrolyte imbalance [Recovered/Resolved]
  - Cardiac failure [Unknown]
  - Hypophagia [Unknown]
